FAERS Safety Report 7816582-3 (Version None)
Quarter: 2011Q4

REPORT INFORMATION
  Report Type: 
  Country: None (occurrence: None)
  Receive Date: 20111017
  Receipt Date: 20111011
  Transmission Date: 20120403
  Serious: Yes (Other)
  Sender: FDA-Public Use
  Company Number: US-PFIZER INC-2011243791

PATIENT
  Sex: Male

DRUGS (2)
  1. PRISTIQ [Suspect]
     Dosage: UNK
  2. LAMOTRIGINE [Suspect]
     Dosage: UNK

REACTIONS (3)
  - INFERTILITY [None]
  - SPERM CONCENTRATION DECREASED [None]
  - SPERMATOZOA PROGRESSIVE MOTILITY DECREASED [None]
